FAERS Safety Report 14991185 (Version 1)
Quarter: 2018Q2

REPORT INFORMATION
  Report Type: Spontaneous
  Country: DE (occurrence: DE)
  Receive Date: 20180608
  Receipt Date: 20180608
  Transmission Date: 20180711
  Serious: Yes (Hospitalization)
  Sender: FDA-Public Use
  Company Number: DE-TEVA-2018-DE-903328

PATIENT
  Age: 52 Year
  Sex: Female

DRUGS (13)
  1. PROTAPHANE [Concomitant]
     Active Substance: INSULIN HUMAN
     Dosage: NACH BZ IE,
  2. CINACALCET. [Suspect]
     Active Substance: CINACALCET
     Dosage: 60 MILLIGRAM DAILY;
     Route: 065
  3. EISEN [Concomitant]
     Dosage: 1500 MILLIGRAM DAILY;
  4. METAMIZOL [Concomitant]
     Active Substance: METAMIZOLE SODIUM
     Dosage: BEDARF, TROPFEN
  5. SEVELAMER [Concomitant]
     Active Substance: SEVELAMER
     Dosage: 7.2 GRAM DAILY;
  6. EISEN [Concomitant]
     Dosage: 1X/WOCHE
  7. COLECALCIFEROL [Concomitant]
     Active Substance: CHOLECALCIFEROL
     Dosage: WOCHE, 0.5-0-0-0
  8. SIMVASTATIN. [Concomitant]
     Active Substance: SIMVASTATIN
     Dosage: 0-0-0-0.5
  9. PARICALCITOL. [Suspect]
     Active Substance: PARICALCITOL
     Route: 065
  10. ERYTHROPOIETIN [Concomitant]
     Active Substance: ERYTHROPOIETIN
     Dosage: / TAG, 0.5-0-0-0
  11. METOPROLOL. [Concomitant]
     Active Substance: METOPROLOL
     Dosage: 4.7 MILLIGRAM DAILY;
  12. ACTRAPID [Concomitant]
     Active Substance: INSULIN HUMAN
     Dosage: NACH BZ IE,
  13. VITAMINE [Concomitant]

REACTIONS (2)
  - Tachycardia [Unknown]
  - Palpitations [Unknown]
